FAERS Safety Report 18697155 (Version 1)
Quarter: 2021Q1

REPORT INFORMATION
  Report Type: Spontaneous
  Country: US (occurrence: US)
  Receive Date: 20210104
  Receipt Date: 20210104
  Transmission Date: 20210419
  Serious: Yes (Other)
  Sender: FDA-Public Use
  Company Number: US-TEVA-2020-US-1865833

PATIENT
  Age: 44 Year
  Sex: Male

DRUGS (10)
  1. CLOPIDOGREL [Concomitant]
     Active Substance: CLOPIDOGREL BISULFATE
     Indication: PRODUCT USED FOR UNKNOWN INDICATION
     Dosage: 75 MILLIGRAM DAILY;
     Route: 065
     Dates: start: 2018
  2. VITAMIN C [Concomitant]
     Active Substance: ASCORBIC ACID
     Indication: PAIN IN EXTREMITY
  3. CLOPIDOGREL [Concomitant]
     Active Substance: CLOPIDOGREL BISULFATE
     Indication: PAIN IN EXTREMITY
  4. ATORVASTATIN [Suspect]
     Active Substance: ATORVASTATIN
     Indication: HYPERLIPIDAEMIA
     Dosage: 20 MILLIGRAM DAILY;
     Route: 065
     Dates: start: 2015, end: 2015
  5. ROSUVASTATIN. [Suspect]
     Active Substance: ROSUVASTATIN
     Indication: HYPERLIPIDAEMIA
     Dosage: 20 MILLIGRAM DAILY;
     Route: 065
     Dates: start: 2018
  6. WARFARIN [Concomitant]
     Active Substance: WARFARIN
     Indication: DRUG THERAPY
     Dosage: 7.5 MILLIGRAM DAILY;
     Route: 065
     Dates: start: 2018
  7. VITAMIN C [Concomitant]
     Active Substance: ASCORBIC ACID
     Indication: MYOPATHY
     Dosage: 500 MILLIGRAM DAILY;
     Route: 065
     Dates: start: 2018
  8. WARFARIN [Concomitant]
     Active Substance: WARFARIN
     Indication: DRUG THERAPY
     Dosage: 5 MILLIGRAM DAILY;
     Route: 065
     Dates: start: 2015
  9. VITAMIN D3 [Concomitant]
     Active Substance: CHOLECALCIFEROL
     Indication: MYOPATHY
     Dosage: 2000 IU (INTERNATIONAL UNIT) DAILY;
     Route: 065
     Dates: start: 2018
  10. VITAMIN D3 [Concomitant]
     Active Substance: CHOLECALCIFEROL
     Indication: PAIN IN EXTREMITY

REACTIONS (2)
  - Myopathy [Recovered/Resolved]
  - Pain in extremity [Recovered/Resolved]

NARRATIVE: CASE EVENT DATE: 2015
